FAERS Safety Report 7532817-9 (Version None)
Quarter: 2011Q2

REPORT INFORMATION
  Report Type: 
  Country: None (occurrence: None)
  Receive Date: 20110601
  Receipt Date: 20110525
  Transmission Date: 20111010
  Serious: Yes (Hospitalization, Other)
  Sender: FDA-Public Use
  Company Number: 2009-200464-NL

PATIENT
  Age: 30 Year
  Sex: Female
  Weight: 72.5755 kg

DRUGS (9)
  1. XANAX [Concomitant]
  2. SKELAXIN [Concomitant]
  3. NORCO [Concomitant]
  4. NUVARING [Suspect]
     Indication: CONTRACEPTION
     Dosage: 1 DF
     Dates: start: 20060101, end: 20080301
  5. NUVARING [Suspect]
     Indication: MENSTRUAL DISORDER
     Dosage: 1 DF
     Dates: start: 20060101, end: 20080301
  6. IBUPROFEN (ADVIL) [Concomitant]
  7. BACLOFEN [Concomitant]
  8. AMOXICILLIN [Concomitant]
  9. LEXAPRO [Concomitant]

REACTIONS (28)
  - HYPOKALAEMIA [None]
  - CONSTIPATION [None]
  - MENORRHAGIA [None]
  - MUSCULAR WEAKNESS [None]
  - CONTUSION [None]
  - PHARYNGITIS STREPTOCOCCAL [None]
  - MELAENA [None]
  - IRRITABLE BOWEL SYNDROME [None]
  - PULMONARY EMBOLISM [None]
  - PLEURAL EFFUSION [None]
  - SYNCOPE [None]
  - FREQUENT BOWEL MOVEMENTS [None]
  - PLANTAR FASCIITIS [None]
  - ABDOMINAL DISTENSION [None]
  - FLATULENCE [None]
  - METRORRHAGIA [None]
  - PELVIC PAIN [None]
  - KYPHOSIS [None]
  - CHEST PAIN [None]
  - PAIN IN EXTREMITY [None]
  - HYPOAESTHESIA [None]
  - POLLAKIURIA [None]
  - PARAESTHESIA [None]
  - VIRAL INFECTION [None]
  - SKIN PAPILLOMA [None]
  - DEPRESSION [None]
  - CONDITION AGGRAVATED [None]
  - INSOMNIA [None]
